FAERS Safety Report 21923812 (Version 1)
Quarter: 2023Q1

REPORT INFORMATION
  Report Type: Report from Study
  Country: US (occurrence: US)
  Receive Date: 20230130
  Receipt Date: 20230130
  Transmission Date: 20230417
  Serious: Yes (Hospitalization)
  Sender: FDA-Public Use
  Company Number: US-GBT-019619

PATIENT
  Age: 24 Year
  Sex: Male

DRUGS (6)
  1. OXBRYTA [Suspect]
     Active Substance: VOXELOTOR
     Indication: Sickle cell disease
     Route: 048
     Dates: start: 20210209
  2. SIKLOS [Concomitant]
     Active Substance: HYDROXYUREA
     Route: 048
     Dates: start: 20201124
  3. ACETAMINOPHEN\OXYCODONE HYDROCHLORIDE [Concomitant]
     Active Substance: ACETAMINOPHEN\OXYCODONE HYDROCHLORIDE
     Indication: Sickle cell disease
     Dosage: 10-325 MG PRN
     Route: 048
     Dates: start: 20220531
  4. FOLVITE [Concomitant]
     Active Substance: FOLIC ACID
     Dosage: PRN
     Route: 048
     Dates: start: 20220319
  5. IBUPROFEN [Concomitant]
     Active Substance: IBUPROFEN
     Indication: Sickle cell disease
     Dosage: PRN
     Route: 048
     Dates: start: 20190319
  6. deferasirox (JADENU) [Concomitant]
     Indication: Sickle cell disease
     Route: 048
     Dates: start: 20210209

REACTIONS (2)
  - Sickle cell anaemia with crisis [Recovered/Resolved]
  - Sickle cell anaemia with crisis [Recovered/Resolved]

NARRATIVE: CASE EVENT DATE: 20221017
